FAERS Safety Report 5210325-8 (Version None)
Quarter: 2006Q4

REPORT INFORMATION
  Report Type: 
  Country: None (occurrence: None)
  Receive Date: 20061103
  Receipt Date: 20060911
  Transmission Date: 20070319
  Serious: Yes (Other)
  Sender: FDA-Public Use
  Company Number: 463259

PATIENT
  Age: 84 Year
  Sex: Male

DRUGS (3)
  1. BONIVA [Suspect]
     Indication: OSTEOPOROSIS
     Dosage: 3 ML
     Dates: start: 20060824
  2. HEART MEDICATION NOS (CARDIAC MEDICATION NOS) [Concomitant]
  3. NEXIUM [Concomitant]

REACTIONS (6)
  - ARTHRALGIA [None]
  - DIZZINESS [None]
  - INJECTION SITE MASS [None]
  - INJECTION SITE REACTION [None]
  - MYALGIA [None]
  - OEDEMA PERIPHERAL [None]
